FAERS Safety Report 7625609-3 (Version None)
Quarter: 2011Q3

REPORT INFORMATION
  Report Type: 
  Country: None (occurrence: None)
  Receive Date: 20110721
  Receipt Date: 20110714
  Transmission Date: 20111222
  Serious: Yes (Other)
  Sender: FDA-Public Use
  Company Number: TW-PFIZER INC-2011158665

PATIENT
  Age: 41 Year
  Sex: Female

DRUGS (2)
  1. CEFTRIAXONE [Concomitant]
     Indication: MENINGITIS BACTERIAL
  2. VANCOMYCIN HCL [Suspect]
     Indication: MENINGITIS BACTERIAL

REACTIONS (1)
  - TOXIC EPIDERMAL NECROLYSIS [None]
